FAERS Safety Report 16625494 (Version 1)
Quarter: 2019Q3

REPORT INFORMATION
  Report Type: Spontaneous
  Country: US (occurrence: US)
  Receive Date: 20190612
  Receipt Date: 20190612
  Transmission Date: 20191004
  Serious: No
  Sender: FDA-Public Use
  Company Number: None

PATIENT
  Age: 55 Year
  Sex: Male
  Weight: 86.18 kg

DRUGS (2)
  1. ENBREL [Suspect]
     Active Substance: ETANERCEPT
     Indication: RHEUMATOID ARTHRITIS
     Route: 058
     Dates: start: 201902
  2. LOSARTAN. [Concomitant]
     Active Substance: LOSARTAN

REACTIONS (9)
  - Vision blurred [None]
  - Dizziness [None]
  - Nausea [None]
  - Hypoaesthesia [None]
  - Swelling [None]
  - Injection site pain [None]
  - Asthenia [None]
  - Paraesthesia [None]
  - Pain in jaw [None]

NARRATIVE: CASE EVENT DATE: 20190227
